FAERS Safety Report 15227394 (Version 1)
Quarter: 2018Q3

REPORT INFORMATION
  Report Type: Spontaneous
  Country: US (occurrence: US)
  Receive Date: 20180801
  Receipt Date: 20180801
  Transmission Date: 20181010
  Serious: No
  Sender: FDA-Public Use
  Company Number: US-MYLANLABS-2018M1052410

PATIENT
  Sex: Male
  Weight: 86 kg

DRUGS (2)
  1. BUSPIRONE HYDROCHLORIDE TABLETS, USP [Suspect]
     Active Substance: BUSPIRONE HYDROCHLORIDE
     Indication: ANXIETY
     Dosage: 30 MG IN THE MORNING AND 15 MG
     Route: 048
  2. BUSPIRONE HYDROCHLORIDE TABLETS, USP [Suspect]
     Active Substance: BUSPIRONE HYDROCHLORIDE
     Indication: TOURETTE^S DISORDER
     Dosage: 30 MG, BID
     Route: 048
     Dates: end: 201803

REACTIONS (6)
  - Underdose [Unknown]
  - Fatigue [Recovered/Resolved]
  - Depression [Recovered/Resolved]
  - Wrong technique in product usage process [Unknown]
  - Insomnia [Recovered/Resolved]
  - Tremor [Recovered/Resolved]
